FAERS Safety Report 8505657-1 (Version None)
Quarter: 2012Q3

REPORT INFORMATION
  Report Type: 
  Country: None (occurrence: None)
  Receive Date: 20120706
  Receipt Date: 20120706
  Transmission Date: 20120928
  Serious: Yes (Other)
  Sender: FDA-Public Use
  Company Number: None

PATIENT
  Age: 16 Year
  Sex: Male
  Weight: 72.5755 kg

DRUGS (2)
  1. DELSYM [Suspect]
     Indication: COUGH
     Dosage: 10ML 12 HOURS PO
     Route: 048
     Dates: start: 20120702, end: 20120703
  2. DELSYM [Suspect]
     Indication: PNEUMONIA PRIMARY ATYPICAL
     Dosage: 10ML 12 HOURS PO
     Route: 048
     Dates: start: 20120702, end: 20120703

REACTIONS (5)
  - FEELING ABNORMAL [None]
  - CRYING [None]
  - DELIRIUM [None]
  - INAPPROPRIATE AFFECT [None]
  - HALLUCINATION [None]
